FAERS Safety Report 8397420-X (Version None)
Quarter: 2012Q2

REPORT INFORMATION
  Report Type: 
  Country: None (occurrence: None)
  Receive Date: 20120323
  Receipt Date: 20110412
  Transmission Date: 20120825
  Serious: Yes (Other)
  Sender: FDA-Public Use
  Company Number: 163-21880-11031708

PATIENT
  Age: 87 Year
  Sex: Male

DRUGS (10)
  1. REVLIMID [Suspect]
     Indication: MYELODYSPLASTIC SYNDROME
     Dosage: 10 MG, 1 IN 1 D, PO,
     Route: 048
     Dates: start: 20110228
  2. ASCORBIC ACID [Concomitant]
  3. ARANESP [Concomitant]
  4. HYDROXYUREA [Concomitant]
  5. ASPIRIN [Concomitant]
  6. LEVOTHYROID (LEVOTHYROXINE SODIUM) [Concomitant]
  7. GABAPENTIN [Concomitant]
  8. NORCO [Concomitant]
  9. AMIODARONE HCL [Concomitant]
  10. MULTIVITAMIN [Concomitant]

REACTIONS (2)
  - HAEMOGLOBIN DECREASED [None]
  - HAEMATOCRIT DECREASED [None]
